FAERS Safety Report 18091019 (Version 1)
Quarter: 2020Q3

REPORT INFORMATION
  Report Type: Spontaneous
  Country: US (occurrence: US)
  Receive Date: 20200729
  Receipt Date: 20200729
  Transmission Date: 20201103
  Serious: No
  Sender: FDA-Public Use
  Company Number: None

PATIENT
  Age: 30 Year
  Sex: Male

DRUGS (1)
  1. ENBREL [Suspect]
     Active Substance: ETANERCEPT
     Indication: PSORIATIC ARTHROPATHY
     Route: 058
     Dates: start: 20200710, end: 20200724

REACTIONS (4)
  - Therapy cessation [None]
  - Pruritus [None]
  - Rash [None]
  - Erythema [None]

NARRATIVE: CASE EVENT DATE: 20200710
